FAERS Safety Report 6255284-4 (Version None)
Quarter: 2009Q3

REPORT INFORMATION
  Report Type: 
  Country: None (occurrence: None)
  Receive Date: 20090702
  Receipt Date: 20090331
  Transmission Date: 20100115
  Serious: No
  Sender: FDA-Public Use
  Company Number: US-ABBOTT-09P-163-0566064-00

PATIENT
  Age: 6 Year

DRUGS (1)
  1. ULTANE [Suspect]
     Indication: TONSILLECTOMY
     Route: 055
     Dates: start: 20090331, end: 20090331

REACTIONS (1)
  - ANAESTHETIC COMPLICATION [None]
